FAERS Safety Report 4322362-6 (Version None)
Quarter: 2004Q1

REPORT INFORMATION
  Report Type: 
  Country: None (occurrence: None)
  Receive Date: 20040322
  Receipt Date: 20040322
  Transmission Date: 20041129
  Serious: Yes (Hospitalization)
  Sender: FDA-Public Use
  Company Number: None

PATIENT
  Age: 56 Year
  Sex: Male
  Weight: 66.2252 kg

DRUGS (1)
  1. D-THRO-METHYLPHENIDATE HCL 5 MG TABLETS CELGENE [Suspect]
     Dosage: 5 MG PO BID AND ESCALATING TO THREE BID PO THEN TAPERED OFF
     Route: 048
     Dates: start: 20020814, end: 20021210

REACTIONS (6)
  - ABDOMINAL PAIN [None]
  - BRAIN NEOPLASM [None]
  - DISEASE RECURRENCE [None]
  - FLUID INTAKE REDUCED [None]
  - NAUSEA [None]
  - NEOPLASM PROGRESSION [None]
